FAERS Safety Report 10613788 (Version 19)
Quarter: 2017Q3

REPORT INFORMATION
  Report Type: Spontaneous
  Country: CN (occurrence: CN)
  Receive Date: 20141128
  Receipt Date: 20170817
  Transmission Date: 20171127
  Serious: Yes (Hospitalization, Other)
  Sender: FDA-Public Use
  Company Number: CN-009507513-1411CHN012400

PATIENT
  Age: 54 Year
  Sex: Male
  Weight: 59.7 kg

DRUGS (13)
  1. EMEND [Suspect]
     Active Substance: APREPITANT
     Indication: PROPHYLAXIS OF NAUSEA AND VOMITING
     Dosage: 125 MG, ONCE, DAY 1
     Route: 048
     Dates: start: 20141113, end: 20141113
  2. CISPLATIN. [Suspect]
     Active Substance: CISPLATIN
     Indication: CHEMOTHERAPY
     Dosage: 40 MG, QD, DAY 1 TO 3; TREATMENT REGIMEN CIS-PLATINUM COMPLEXES + ETOPOSIDE
     Route: 041
     Dates: start: 20141113, end: 20141115
  3. ONDANSETRON [Concomitant]
     Active Substance: ONDANSETRON
     Indication: PROPHYLAXIS OF NAUSEA AND VOMITING
     Dosage: 8 MG, QD, STRENGTH 4MG/2ML
     Route: 042
     Dates: start: 20141113, end: 20141115
  4. ZOLEDRONIC ACID [Concomitant]
     Active Substance: ZOLEDRONIC ACID
     Indication: PROPHYLAXIS
     Dosage: 4 MG, QD
     Route: 041
     Dates: start: 20141116, end: 20141116
  5. ETOPOSIDE. [Suspect]
     Active Substance: ETOPOSIDE
     Indication: CHEMOTHERAPY
     Dosage: 200 MG, QD, DAY 1 TO 3;  TREATMENT REGIMEN CIS-PLATINUM COMPLEXES + ETOPOSIDE
     Route: 041
     Dates: start: 20141113, end: 20141115
  6. SODIUM BICARBONATE. [Concomitant]
     Active Substance: SODIUM BICARBONATE
     Indication: URINE ABNORMALITY
     Dosage: 50ML/CC DAILY, STRENGTH 5% *1ML
     Route: 041
     Dates: start: 20141113, end: 20141115
  7. ENOXAPARIN SODIUM. [Concomitant]
     Active Substance: ENOXAPARIN SODIUM
     Indication: THROMBOSIS PROPHYLAXIS
     Dosage: 80 MG, QD
     Route: 058
     Dates: start: 20141114, end: 20141116
  8. CALCIUM GLUCONATE (+) MAGNESIUM SULFATE (+) POTASSIUM CHLORIDE (+) SOD [Concomitant]
     Indication: ELECTROLYTE SUBSTITUTION THERAPY
     Dosage: TOTAL DAILY DOSE 500 ML/CC
     Route: 041
     Dates: start: 20141113, end: 20141115
  9. MANNITOL. [Concomitant]
     Active Substance: MANNITOL
     Indication: DIURETIC THERAPY
     Dosage: 50 G, QD, 50G/250ML
     Route: 041
     Dates: start: 20141113, end: 20141115
  10. GLUTATHIONE [Concomitant]
     Active Substance: GLUTATHIONE
     Indication: PROPHYLAXIS
     Dosage: 1.8 G, QD
     Route: 041
     Dates: start: 20141113, end: 20141115
  11. EMEND [Suspect]
     Active Substance: APREPITANT
     Dosage: 80 MG, QD, DAY 2 AND DAY 3
     Route: 048
     Dates: start: 20141114, end: 20141115
  12. PANTOPRAZOLE [Concomitant]
     Active Substance: PANTOPRAZOLE
     Indication: PROPHYLAXIS
     Dosage: 42.3 MG, QD
     Route: 041
     Dates: start: 20141113, end: 20141115
  13. DEXAMETHASONE. [Concomitant]
     Active Substance: DEXAMETHASONE
     Indication: PROPHYLAXIS OF NAUSEA AND VOMITING
     Dosage: 12 MG, QD
     Route: 048
     Dates: start: 20141113, end: 20141115

REACTIONS (6)
  - Hypokalaemia [Recovered/Resolved]
  - Febrile neutropenia [Recovered/Resolved]
  - Neuralgia [Recovered/Resolved]
  - Hyponatraemia [Recovering/Resolving]
  - Bone marrow failure [Recovered/Resolved]
  - Hypocalcaemia [Recovering/Resolving]

NARRATIVE: CASE EVENT DATE: 20141124
